FAERS Safety Report 7827444 (Version 4)
Quarter: 2013Q2

REPORT INFORMATION
  Report Type: Spontaneous
  Country: JP (occurrence: JP)
  Receive Date: 20110225
  Receipt Date: 20130529
  Transmission Date: 20140414
  Serious: Yes (Hospitalization)
  Sender: FDA-Public Use
  Company Number: PHHY2011JP13047

PATIENT
  Age: 58 Year
  Sex: Female

DRUGS (7)
  1. CARBAMAZEPINE [Suspect]
     Indication: TEMPORAL LOBE EPILEPSY
  2. VALPROATE SODIUM [Suspect]
     Indication: TEMPORAL LOBE EPILEPSY
  3. CLOBAZAM [Concomitant]
     Indication: TEMPORAL LOBE EPILEPSY
  4. GABAPENTIN [Concomitant]
     Indication: TEMPORAL LOBE EPILEPSY
  5. TOPIRAMATE [Concomitant]
     Indication: TEMPORAL LOBE EPILEPSY
  6. LAMOTRIGINE [Concomitant]
     Indication: TEMPORAL LOBE EPILEPSY
     Dosage: 12.5 MG, DAILY
  7. LAMOTRIGINE [Concomitant]
     Dosage: 100 MG, DAILY

REACTIONS (5)
  - Cognitive disorder [Recovering/Resolving]
  - Decreased appetite [Recovering/Resolving]
  - Nausea [Recovering/Resolving]
  - Anticonvulsant drug level increased [Recovering/Resolving]
  - Toxicity to various agents [Recovering/Resolving]
